FAERS Safety Report 21701602 (Version 1)
Quarter: 2022Q4

REPORT INFORMATION
  Report Type: Spontaneous
  Country: US (occurrence: None)
  Receive Date: 20221208
  Receipt Date: 20221208
  Transmission Date: 20230113
  Serious: Yes (Hospitalization, Other)
  Sender: FDA-Public Use
  Company Number: US-Unichem Pharmaceuticals (USA) Inc-UCM202212-001269

PATIENT
  Age: 50 Year
  Sex: Male

DRUGS (2)
  1. DIVALPROEX SODIUM [Suspect]
     Active Substance: DIVALPROEX SODIUM
     Indication: Seizure
  2. DIVALPROEX SODIUM [Suspect]
     Active Substance: DIVALPROEX SODIUM

REACTIONS (2)
  - Neurotoxicity [Recovering/Resolving]
  - Drug level above therapeutic [Unknown]
